FAERS Safety Report 20937251 (Version 2)
Quarter: 2022Q3

REPORT INFORMATION
  Report Type: Report from Study
  Country: US (occurrence: US)
  Receive Date: 20220609
  Receipt Date: 20220720
  Transmission Date: 20221027
  Serious: Yes (Hospitalization)
  Sender: FDA-Public Use
  Company Number: US-JNJFOC-20220606656

PATIENT
  Age: 22 Year
  Sex: Female
  Weight: 98.064 kg

DRUGS (2)
  1. INFLIXIMAB [Suspect]
     Active Substance: INFLIXIMAB
     Indication: Inflammatory bowel disease
     Route: 042
     Dates: start: 20091021, end: 20140815
  2. INFLIXIMAB [Suspect]
     Active Substance: INFLIXIMAB
     Dosage: DATE OF LAST ADMINISTRATION WAS IN JUN-2019
     Route: 042
     Dates: start: 20190504

REACTIONS (1)
  - Vomiting [Recovered/Resolved with Sequelae]

NARRATIVE: CASE EVENT DATE: 20220301
